FAERS Safety Report 7949781-0 (Version None)
Quarter: 2011Q4

REPORT INFORMATION
  Report Type: 
  Country: None (occurrence: None)
  Receive Date: 20111130
  Receipt Date: 20111114
  Transmission Date: 20120403
  Serious: Yes (Hospitalization)
  Sender: FDA-Public Use
  Company Number: AU-EISAI INC-E3810-05093-SPO-AU

PATIENT
  Age: 68 Year
  Sex: Male

DRUGS (3)
  1. VALSARTAN [Suspect]
     Route: 048
     Dates: start: 20090620, end: 20090829
  2. ATORVASTATIN [Suspect]
     Indication: METABOLIC DISORDER
     Route: 048
  3. RABEPRAZOLE SODIUM [Suspect]
     Route: 048

REACTIONS (1)
  - PANCREATITIS [None]
